FAERS Safety Report 19782838 (Version 3)
Quarter: 2024Q1

REPORT INFORMATION
  Report Type: Report from Study
  Country: US (occurrence: US)
  Receive Date: 20210903
  Receipt Date: 20240103
  Transmission Date: 20240410
  Serious: No
  Sender: FDA-Public Use
  Company Number: US-ACADIA PHARMACEUTICALS INC.-ACA-2021-PIM-002926

PATIENT
  Age: 61 Year
  Sex: Male

DRUGS (11)
  1. NUPLAZID [Suspect]
     Active Substance: PIMAVANSERIN TARTRATE
     Indication: Parkinson^s disease
     Dosage: 10 MG AS DIRECTED
     Route: 065
     Dates: start: 20210507
  2. NUPLAZID [Suspect]
     Active Substance: PIMAVANSERIN TARTRATE
     Dosage: 10 MILLIGRAM, QD
     Route: 048
     Dates: start: 202109
  3. CARBIDOPA\LEVODOPA [Concomitant]
     Active Substance: CARBIDOPA\LEVODOPA
  4. CLONAZEPAM [Concomitant]
     Active Substance: CLONAZEPAM
  5. ESCITALOPRAM [Concomitant]
     Active Substance: ESCITALOPRAM OXALATE
  6. LEVOTHYROXINE [Concomitant]
     Active Substance: LEVOTHYROXINE
  7. MYRBETRIQ [Concomitant]
     Active Substance: MIRABEGRON
  8. RASAGILINE [Concomitant]
     Active Substance: RASAGILINE
  9. SOLIFENACIN [Concomitant]
     Active Substance: SOLIFENACIN
  10. SINEMET [Concomitant]
     Active Substance: CARBIDOPA\LEVODOPA
  11. AZILECT [Concomitant]
     Active Substance: RASAGILINE MESYLATE

REACTIONS (2)
  - Fatigue [Not Recovered/Not Resolved]
  - Hallucination [Unknown]

NARRATIVE: CASE EVENT DATE: 20210701
